FAERS Safety Report 24812070 (Version 1)
Quarter: 2025Q1

REPORT INFORMATION
  Report Type: Spontaneous
  Country: US (occurrence: US)
  Receive Date: 20250106
  Receipt Date: 20250106
  Transmission Date: 20250409
  Serious: No
  Sender: PFIZER
  Company Number: US-PFIZER INC-PV202300070503

PATIENT
  Age: 72 Year
  Sex: Male
  Weight: 90.2 kg

DRUGS (2)
  1. XALKORI [Suspect]
     Active Substance: CRIZOTINIB
     Indication: Lung neoplasm malignant
     Dates: start: 2019
  2. XALKORI [Suspect]
     Active Substance: CRIZOTINIB
     Indication: Lung adenocarcinoma
     Dosage: 250 MG, 2X/DAY TAKE 1 CAP BY MOUTH TWO TIMES A DAY
     Route: 048

REACTIONS (2)
  - Normocytic anaemia [Unknown]
  - Oedema peripheral [Unknown]
